FAERS Safety Report 5922085-3 (Version None)
Quarter: 2008Q4

REPORT INFORMATION
  Report Type: 
  Country: None (occurrence: None)
  Receive Date: 20081017
  Receipt Date: 20081013
  Transmission Date: 20090506
  Serious: Yes (Hospitalization)
  Sender: FDA-Public Use
  Company Number: B0541914A

PATIENT
  Age: 45 Year
  Sex: Female
  Weight: 49 kg

DRUGS (2)
  1. LAPATINIB [Suspect]
     Dosage: 1000MG PER DAY
     Route: 048
     Dates: start: 20080917
  2. CAPECITABINE [Suspect]
     Dosage: 3000MG PER DAY
     Route: 048
     Dates: start: 20080917

REACTIONS (4)
  - ANAEMIA [None]
  - FEBRILE NEUTROPENIA [None]
  - HAEMOGLOBIN DECREASED [None]
  - PLATELET COUNT DECREASED [None]
